FAERS Safety Report 4277950-2 (Version None)
Quarter: 2004Q1

REPORT INFORMATION
  Report Type: 
  Country: None (occurrence: None)
  Receive Date: 20040120
  Receipt Date: 20040107
  Transmission Date: 20041129
  Serious: Yes (Death)
  Sender: FDA-Public Use
  Company Number: US-SHR-03-017171

PATIENT
  Age: 29 Year
  Sex: Male
  Weight: 99.8 kg

DRUGS (13)
  1. BETASERON [Suspect]
     Indication: MULTIPLE SCLEROSIS
     Dosage: 8 MIU, EVERY 2D, SUBCUTANEOUS
     Route: 058
     Dates: start: 19940915, end: 20031022
  2. ASPIRIN [Concomitant]
  3. GEMFIBROZIL [Concomitant]
  4. WARFARIN SODIUM [Concomitant]
  5. CLONAZEPAM [Concomitant]
  6. FUROSEMIDE [Concomitant]
  7. OXAPROZIN [Concomitant]
  8. CARBAMAZEPINE [Concomitant]
  9. BACLOFEN [Concomitant]
  10. CIMETIDINE HCL [Concomitant]
  11. HYDROCHLOROTHIAZIDE [Concomitant]
  12. NEURONTIN [Concomitant]
  13. FOSAMAX (ALENDRONATE SODIUM) AMPULE [Concomitant]

REACTIONS (2)
  - PNEUMONIA [None]
  - RESPIRATORY FAILURE [None]
